FAERS Safety Report 9900264 (Version 1)
Quarter: 2014Q1

REPORT INFORMATION
  Report Type: Spontaneous
  Country: IE (occurrence: IE)
  Receive Date: 20140215
  Receipt Date: 20140215
  Transmission Date: 20141002
  Serious: Yes (Disabling)
  Sender: FDA-Public Use
  Company Number: IE-AMGEN-IRLSP2014009856

PATIENT
  Age: 80 Year
  Sex: Female

DRUGS (2)
  1. MIMPARA [Suspect]
     Indication: RENAL FAILURE CHRONIC
     Dosage: 30 MG, QD
     Route: 048
     Dates: start: 20130522, end: 20140205
  2. CYCLIZINE [Concomitant]

REACTIONS (2)
  - Nausea [Recovered/Resolved]
  - Vomiting [Recovered/Resolved]
